FAERS Safety Report 8790757 (Version 1)
Quarter: 2012Q4

REPORT INFORMATION
  Report Type: Spontaneous
  Country: US (occurrence: None)
  Receive Date: 20120913
  Receipt Date: 20120913
  Transmission Date: 20130627
  Serious: No
  Sender: FDA-Public Use
  Company Number: None

PATIENT
  Age: 37 Year
  Sex: Female

DRUGS (2)
  1. VIIBRYD [Suspect]
     Indication: DEPRESSION
     Route: 048
     Dates: start: 20120803, end: 20120912
  2. SERTRALINE [Suspect]
     Indication: DEPRESSION
     Route: 048
     Dates: start: 20120201, end: 20120802

REACTIONS (8)
  - Drug withdrawal syndrome [None]
  - Mania [None]
  - Anger [None]
  - Depression [None]
  - Anxiety [None]
  - Tremor [None]
  - Palpitations [None]
  - Suicidal ideation [None]
